FAERS Safety Report 6056044-X (Version None)
Quarter: 2009Q1

REPORT INFORMATION
  Report Type: 
  Country: None (occurrence: None)
  Receive Date: 20090126
  Receipt Date: 20090109
  Transmission Date: 20090719
  Serious: Yes (Hospitalization)
  Sender: FDA-Public Use
  Company Number: 2009S1000594

PATIENT
  Age: 83 Year
  Sex: Female

DRUGS (8)
  1. AMLODIPINE [Suspect]
     Indication: HYPERTENSION
     Dosage: 5 MG; ORAL; DAILY
     Route: 048
  2. DIGITOXIN INJ [Suspect]
     Indication: CARDIAC FAILURE
     Dosage: 0.07 MG; ORAL
     Route: 048
  3. INDAPAMIDE [Suspect]
     Indication: HYPERTENSION
     Dosage: 1.5 MG; ORAL; DAILY
     Route: 048
  4. ENALAPRIL MALEATE [Suspect]
     Indication: HYPERTENSION
     Dosage: 2.5 MG; ORAL; DAILY
     Route: 048
  5. MOXONIDINE (MOXONIDINE) [Suspect]
     Indication: HYPERTENSION
     Dosage: 0.4 MG; ORAL; DAILY
     Route: 048
  6. MIXTARD HUMAN 70/30 [Concomitant]
  7. FALITHROM (PHENPROCOUMON) [Concomitant]
  8. ATORVASTATIN CALCIUM [Concomitant]

REACTIONS (2)
  - BRADYCARDIA [None]
  - DRUG INTERACTION [None]
